FAERS Safety Report 4686628-2 (Version None)
Quarter: 2005Q2

REPORT INFORMATION
  Report Type: 
  Country: None (occurrence: None)
  Receive Date: 20050607
  Receipt Date: 20050603
  Transmission Date: 20051028
  Serious: Yes (Death)
  Sender: FDA-Public Use
  Company Number: 200319488BWH

PATIENT
  Age: 61 Year
  Sex: Male

DRUGS (3)
  1. AVELOX [Suspect]
     Indication: PROSTATITIS
     Dosage: 400 MG QD ORAL
     Route: 048
     Dates: start: 20010801
  2. ELAVIL [Concomitant]
  3. SONATA [Concomitant]

REACTIONS (20)
  - AFFECT LABILITY [None]
  - ANHEDONIA [None]
  - AREFLEXIA [None]
  - BLOOD PRESSURE DECREASED [None]
  - CARDIAC ARREST [None]
  - COMPLETED SUICIDE [None]
  - DELUSION [None]
  - DEPRESSED MOOD [None]
  - DEPRESSION [None]
  - GUN SHOT WOUND [None]
  - HAEMORRHAGE INTRACRANIAL [None]
  - HEAD INJURY [None]
  - INSOMNIA [None]
  - LOSS OF CONSCIOUSNESS [None]
  - PANIC REACTION [None]
  - PSYCHOTIC DISORDER [None]
  - SKULL FRACTURE [None]
  - SKULL FRACTURED BASE [None]
  - SUBDURAL HAEMATOMA [None]
  - UNRESPONSIVE TO PAIN STIMULI [None]
